FAERS Safety Report 6617380-9 (Version None)
Quarter: 2010Q1

REPORT INFORMATION
  Report Type: 
  Country: None (occurrence: None)
  Receive Date: 20100307
  Receipt Date: 20100222
  Transmission Date: 20100710
  Serious: Yes (Other)
  Sender: FDA-Public Use
  Company Number: US-BAYER-201014731NA

PATIENT
  Age: 42 Year
  Sex: Male

DRUGS (2)
  1. AVELOX [Suspect]
     Indication: RESPIRATORY TRACT INFECTION
     Dosage: SAMPLE PACK - PATIENT SPLIT THE FIRST TABLET
     Route: 048
     Dates: start: 20091201, end: 20091201
  2. IRON [Concomitant]

REACTIONS (8)
  - ANXIETY [None]
  - DIZZINESS [None]
  - FEAR [None]
  - FEELING HOT [None]
  - FOREIGN BODY [None]
  - OESOPHAGEAL SPASM [None]
  - OESOPHAGEAL ULCER [None]
  - VOMITING [None]
